FAERS Safety Report 6511680-9 (Version None)
Quarter: 2009Q4

REPORT INFORMATION
  Report Type: 
  Country: None (occurrence: None)
  Receive Date: 20091222
  Receipt Date: 20090508
  Transmission Date: 20100525
  Serious: No
  Sender: FDA-Public Use
  Company Number: US-ASTRAZENECA-2009UW11889

PATIENT
  Age: 60 Year
  Sex: Male
  Weight: 76.2 kg

DRUGS (6)
  1. CRESTOR [Suspect]
     Indication: BLOOD CHOLESTEROL INCREASED
     Route: 048
  2. CRESTOR [Suspect]
     Route: 048
  3. GLIPIZIDE [Concomitant]
     Indication: DIABETES MELLITUS
  4. ENALAPRIL MALEATE [Concomitant]
  5. AVODART [Concomitant]
     Indication: PROSTATOMEGALY
  6. ACIPHEX [Concomitant]
     Indication: DYSPEPSIA

REACTIONS (1)
  - BLOOD GLUCOSE DECREASED [None]
